FAERS Safety Report 8461906-X (Version None)
Quarter: 2012Q2

REPORT INFORMATION
  Report Type: 
  Country: None (occurrence: None)
  Receive Date: 20120323
  Receipt Date: 20110922
  Transmission Date: 20120825
  Serious: Yes (Other)
  Sender: FDA-Public Use
  Company Number: 163-21880-11093123

PATIENT
  Age: 73 Year
  Sex: Male
  Weight: 102.0593 kg

DRUGS (7)
  1. VITAMIN B (VITAMIN B) [Concomitant]
  2. CENTRUM (CENTRUM) [Concomitant]
  3. ATIVAN [Concomitant]
  4. DOXAZOSIN MESYLATE [Concomitant]
  5. REVLIMID [Suspect]
     Indication: MULTIPLE MYELOMA
     Dosage: 5 MG, 1 IN 2 D, PO
     Route: 048
     Dates: start: 20080915
  6. ASPIRIN [Concomitant]
  7. CALCIUM CARBONATE [Concomitant]

REACTIONS (1)
  - PALPITATIONS [None]
